FAERS Safety Report 6207188-0 (Version None)
Quarter: 2009Q2

REPORT INFORMATION
  Report Type: 
  Country: None (occurrence: None)
  Receive Date: 20090528
  Receipt Date: 20090519
  Transmission Date: 20091009
  Serious: Yes (Hospitalization, Other)
  Sender: FDA-Public Use
  Company Number: US-ABBOTT-09P-163-0574419-00

PATIENT
  Weight: 108.51 kg

DRUGS (11)
  1. HUMIRA [Suspect]
     Indication: RHEUMATOID ARTHRITIS
     Route: 058
     Dates: start: 20080101
  2. METFORMIN HCL [Concomitant]
     Indication: DRUG USE FOR UNKNOWN INDICATION
     Dosage: 1 IN AM 1/2 AT NIGHT
     Route: 048
  3. AMLODIPINE BESILATE [Concomitant]
     Indication: DRUG USE FOR UNKNOWN INDICATION
  4. PROTONIX [Concomitant]
     Indication: DRUG USE FOR UNKNOWN INDICATION
  5. LYRICA [Concomitant]
     Indication: DRUG USE FOR UNKNOWN INDICATION
     Dosage: 100 IN AM 100 NOON 150 AT NIGHT
     Route: 048
  6. LIDODERM [Concomitant]
     Indication: DRUG USE FOR UNKNOWN INDICATION
     Dosage: FORM: PATCH
     Route: 062
  7. SKELAXIN [Concomitant]
     Indication: PAIN
  8. CYMBALTA [Concomitant]
     Indication: DRUG USE FOR UNKNOWN INDICATION
     Dosage: HS
  9. DARVOCET-N 100 [Concomitant]
     Indication: DRUG USE FOR UNKNOWN INDICATION
  10. CALTRATE 600 + D [Concomitant]
     Indication: DRUG USE FOR UNKNOWN INDICATION
  11. M.V.I. [Concomitant]
     Indication: DRUG USE FOR UNKNOWN INDICATION

REACTIONS (4)
  - ABASIA [None]
  - CARTILAGE INJURY [None]
  - DRUG DOSE OMISSION [None]
  - INTERVERTEBRAL DISC PROTRUSION [None]
